FAERS Safety Report 25451459 (Version 1)
Quarter: 2025Q2

REPORT INFORMATION
  Report Type: Spontaneous
  Country: US (occurrence: None)
  Receive Date: 20250617
  Receipt Date: 20250617
  Transmission Date: 20250717
  Serious: Yes (Hospitalization, Disabling, Other)
  Sender: FDA-CTU
  Company Number: None

PATIENT
  Age: 27 Year
  Sex: Female
  Weight: 99 kg

DRUGS (6)
  1. LEXAPRO [Suspect]
     Active Substance: ESCITALOPRAM OXALATE
     Indication: Drug therapy
     Dates: start: 20220601, end: 20230401
  2. PROZAC [Suspect]
     Active Substance: FLUOXETINE HYDROCHLORIDE
  3. MAGNESIUM [Concomitant]
     Active Substance: MAGNESIUM
  4. glycinate [Concomitant]
  5. VITAMIN D [Concomitant]
     Active Substance: VITAMIN D NOS
  6. FISH OIL [Concomitant]
     Active Substance: FISH OIL

REACTIONS (16)
  - Nervous system disorder [None]
  - Pain [None]
  - Pain of skin [None]
  - Dyspnoea [None]
  - Sleep disorder [None]
  - Weight increased [None]
  - Discomfort [None]
  - Paradoxical drug reaction [None]
  - Akathisia [None]
  - Restlessness [None]
  - Neuralgia [None]
  - Agitation [None]
  - Asthenia [None]
  - Quality of life decreased [None]
  - Impaired work ability [None]
  - Bedridden [None]

NARRATIVE: CASE EVENT DATE: 20231023
